FAERS Safety Report 9345897 (Version 2)
Quarter: 2015Q4

REPORT INFORMATION
  Report Type: Report from Study
  Country: DE (occurrence: DE)
  Receive Date: 20130613
  Receipt Date: 20151015
  Transmission Date: 20160305
  Serious: Yes (Hospitalization)
  Sender: FDA-Public Use
  Company Number: DE-ROCHE-1185813

PATIENT
  Age: 54 Year
  Sex: Female
  Weight: 74 kg

DRUGS (10)
  1. TAVEGIL [Concomitant]
     Active Substance: CLEMASTINE FUMARATE
     Indication: PROPHYLAXIS
     Route: 042
     Dates: start: 20120918, end: 20130405
  2. DENOSUMAB [Concomitant]
     Active Substance: DENOSUMAB
     Route: 058
     Dates: start: 20130322
  3. DEXAMETHASON [Concomitant]
     Active Substance: DEXAMETHASONE
     Route: 048
     Dates: start: 20120918, end: 20130405
  4. BEVACIZUMAB [Suspect]
     Active Substance: BEVACIZUMAB
     Indication: BREAST CANCER METASTATIC
     Route: 042
     Dates: start: 20120918, end: 20130108
  5. GRANISETRON [Concomitant]
     Active Substance: GRANISETRON
     Indication: PROPHYLAXIS
     Route: 048
     Dates: start: 20120918, end: 20130405
  6. RANITIDIN [Concomitant]
     Active Substance: RANITIDINE HYDROCHLORIDE
     Indication: PROPHYLAXIS
     Route: 042
     Dates: start: 20120918, end: 20130405
  7. PACLITAXEL. [Suspect]
     Active Substance: PACLITAXEL
     Indication: BREAST CANCER METASTATIC
     Route: 042
     Dates: start: 20120918, end: 20130419
  8. DENOSUMAB [Concomitant]
     Active Substance: DENOSUMAB
     Route: 058
     Dates: start: 20130315
  9. TARGIN [Concomitant]
     Active Substance: NALOXONE HYDROCHLORIDE\OXYCODONE HYDROCHLORIDE
     Indication: PAIN
     Dosage: 10/5 MG
     Route: 048
     Dates: start: 20130513, end: 20140408
  10. DEXAMETHASON [Concomitant]
     Active Substance: DEXAMETHASONE
     Indication: PROPHYLAXIS
     Route: 042
     Dates: start: 20120918, end: 20130405

REACTIONS (4)
  - Pyrexia [Recovered/Resolved]
  - General physical health deterioration [Recovered/Resolved]
  - C-reactive protein increased [Recovered/Resolved]
  - Bronchitis [Recovered/Resolved]

NARRATIVE: CASE EVENT DATE: 20121225
